FAERS Safety Report 20138746 (Version 2)
Quarter: 2021Q4

REPORT INFORMATION
  Report Type: Spontaneous
  Country: FR (occurrence: FR)
  Receive Date: 20211202
  Receipt Date: 20211207
  Transmission Date: 20220303
  Serious: Yes (Other)
  Sender: FDA-Public Use
  Company Number: FR-AUROBINDO-AUR-APL-2021-041401

PATIENT
  Age: 72 Year
  Sex: Male

DRUGS (4)
  1. AMLODIPINE [Suspect]
     Active Substance: AMLODIPINE BESYLATE
     Indication: Hypertension
     Dosage: 10 MILLIGRAM
     Route: 065
  2. LEVODOPA [Concomitant]
     Active Substance: LEVODOPA
     Indication: Parkinson^s disease
     Dosage: 100 MILLIGRAM, TID (100 MILLIGRAM, 3 TIMES A DAY)
  3. LEVODOPA [Concomitant]
     Active Substance: LEVODOPA
     Dosage: 150 MILLIGRAM, TID (150 MILLIGRAM, 3 TIMES A DAY)
  4. SOLIFENACIN [Concomitant]
     Active Substance: SOLIFENACIN
     Dosage: 10 MILLIGRAM

REACTIONS (2)
  - Loss of consciousness [Unknown]
  - Malaise [Unknown]
